FAERS Safety Report 5531863-4 (Version None)
Quarter: 2007Q4

REPORT INFORMATION
  Report Type: 
  Country: None (occurrence: None)
  Receive Date: 20071203
  Receipt Date: 20071120
  Transmission Date: 20080405
  Serious: Yes (Death)
  Sender: FDA-Public Use
  Company Number: DE-ROCHE-532600

PATIENT
  Age: 62 Year
  Sex: Female
  Weight: 89 kg

DRUGS (8)
  1. CAPECITABINE [Suspect]
     Indication: BREAST CANCER METASTATIC
     Dosage: FREQUENCY REPORTED AS D 1-14. TAKEN DAYS 1-14, Q 22 DAYS  FOR 4 CYCLES AS PER PROTOCOL. DATE OF LAS+
     Route: 048
     Dates: start: 20071105, end: 20071119
  2. EPIRUBICIN [Suspect]
     Indication: BREAST CANCER METASTATIC
     Dosage: DATE OF LAST DOSE PRIOR TO SAE REPORTED AS 19 OCTOBER 2007.
     Route: 042
     Dates: start: 20070830
  3. CYCLOPHOSPHAMIDE [Suspect]
     Indication: BREAST CANCER METASTATIC
     Dosage: DATE OF LAST DOSE PRIOR TO SAE REPORTED AS: 19 OCTOBER 2007.
     Route: 042
     Dates: start: 20070830
  4. PACLITAXEL [Suspect]
     Indication: BREAST CANCER METASTATIC
     Dosage: DATE OF LAST DOSE PRIOR TO SAE REPORTED AS: 05 NOVEMBER 2007.
     Route: 042
     Dates: start: 20071105
  5. DEXAMETHASONE [Concomitant]
     Dosage: FREQUENCY REPORTED AS 7D.
     Route: 042
     Dates: start: 20071105, end: 20071105
  6. TAVEGIL [Concomitant]
     Dosage: FREQUENCY REPORTED AS 7D.
     Route: 042
     Dates: start: 20071105, end: 20071105
  7. SOSTRIL [Concomitant]
     Dosage: FREQUENCY REPORTED AS 7D.
     Route: 042
     Dates: start: 20071105, end: 20071105
  8. ZOFRAN [Concomitant]
     Dosage: FREQUENCY REPORTED AS 7D.
     Route: 042
     Dates: start: 20071105, end: 20071105

REACTIONS (5)
  - LEUKOPENIA [None]
  - MUCOSAL INFLAMMATION [None]
  - MULTI-ORGAN FAILURE [None]
  - SEPTIC SHOCK [None]
  - THROMBOCYTOPENIA [None]
